FAERS Safety Report 4848791-X (Version None)
Quarter: 2005Q4

REPORT INFORMATION
  Report Type: 
  Country: None (occurrence: None)
  Receive Date: 20051206
  Receipt Date: 20051125
  Transmission Date: 20060501
  Serious: Yes (Hospitalization)
  Sender: FDA-Public Use
  Company Number: GXKR2005DE02049

PATIENT
  Age: 68 Year
  Sex: Male
  Weight: 75 kg

DRUGS (4)
  1. SULFAMETHOXAZOLE + TRIMETHOPRIM [Suspect]
     Indication: URINARY TRACT INFECTION
     Dosage: 960 MG, ORAL
     Route: 048
     Dates: start: 20050926, end: 20050906
  2. NORVASC [Concomitant]
  3. COVERSUM (PERINDOPRIL) [Concomitant]
  4. FRAXIPARINE (NADROPARIN CALCIUM) [Concomitant]

REACTIONS (8)
  - BACK PAIN [None]
  - BLOOD CREATININE INCREASED [None]
  - CHILLS [None]
  - HAEMATURIA [None]
  - NAUSEA [None]
  - RENAL FAILURE [None]
  - THROMBOCYTOPENIA [None]
  - VOMITING [None]
